FAERS Safety Report 7860343-6 (Version None)
Quarter: 2011Q4

REPORT INFORMATION
  Report Type: 
  Country: None (occurrence: None)
  Receive Date: 20111027
  Receipt Date: 20111012
  Transmission Date: 20120403
  Serious: Yes (Life-Threatening, Hospitalization, Other)
  Sender: FDA-Public Use
  Company Number: PHHY2009FR06282

PATIENT
  Sex: Male
  Weight: 18 kg

DRUGS (7)
  1. FELDENE [Concomitant]
     Dosage: 5 MG PER DAY
     Dates: start: 20030911
  2. GRANION ZINC [Concomitant]
     Dosage: 15 MG PER DAY
     Dates: start: 20031211
  3. EXJADE [Suspect]
     Indication: HAEMOSIDEROSIS
     Dosage: 30 MG/KG, QD
     Dates: start: 20070130
  4. HYDREA [Suspect]
     Dosage: 430 MG DAILY
     Dates: start: 20080729
  5. PHENOXYMETHYL PENICILLIN [Concomitant]
     Dosage: 1500000 IU PER DAY
     Dates: start: 20030612
  6. EXJADE [Suspect]
     Indication: SICKLE CELL ANAEMIA
  7. IBUPROFEN (ADVIL) [Suspect]
     Indication: PAIN
     Dosage: 1 SINGLE DOSE FOR 18 KG

REACTIONS (11)
  - BLOOD UREA INCREASED [None]
  - RENAL PAPILLARY NECROSIS [None]
  - BLOOD CREATININE INCREASED [None]
  - URINE OUTPUT DECREASED [None]
  - POLYURIA [None]
  - DEHYDRATION [None]
  - GASTROINTESTINAL DISORDER [None]
  - RENAL TUBULAR NECROSIS [None]
  - RENAL FAILURE [None]
  - FOOD INTOLERANCE [None]
  - VOMITING [None]
